FAERS Safety Report 5748970-3 (Version None)
Quarter: 2008Q2

REPORT INFORMATION
  Report Type: 
  Country: None (occurrence: None)
  Receive Date: 20080527
  Receipt Date: 20080521
  Transmission Date: 20081010
  Serious: Yes (Other)
  Sender: FDA-Public Use
  Company Number: US-BRISTOL-MYERS SQUIBB COMPANY-14199731

PATIENT

DRUGS (2)
  1. CARMUSTINE [Suspect]
     Indication: MALIGNANT GLIOMA
     Route: 042
  2. RADIOTHERAPY [Suspect]

REACTIONS (12)
  - ANAEMIA [None]
  - ASTHENIA [None]
  - EMBOLISM [None]
  - INTERSTITIAL LUNG DISEASE [None]
  - NAUSEA [None]
  - NEUROTOXICITY [None]
  - NEUTROPENIA [None]
  - OSTEORADIONECROSIS [None]
  - PULMONARY EMBOLISM [None]
  - SKIN REACTION [None]
  - THROMBOCYTOPENIA [None]
  - VOMITING [None]
